FAERS Safety Report 7958856-1 (Version None)
Quarter: 2011Q4

REPORT INFORMATION
  Report Type: 
  Country: None (occurrence: None)
  Receive Date: 20111206
  Receipt Date: 20111130
  Transmission Date: 20120403
  Serious: Yes (Hospitalization, Other)
  Sender: FDA-Public Use
  Company Number: DE-BRISTOL-MYERS SQUIBB COMPANY-16209546

PATIENT
  Age: 18 Year
  Sex: Male
  Weight: 61 kg

DRUGS (1)
  1. ABILIFY [Suspect]
     Indication: SCHIZOPHRENIA
     Dosage: 5 MG INITIALLY; DOSE INCREASED TO 18MG AND 2-3 WEEKS AGO INCREASED AGAIN TO 22.5MG
     Dates: start: 20110301, end: 20111101

REACTIONS (2)
  - SUICIDE ATTEMPT [None]
  - SEXUAL DYSFUNCTION [None]
